FAERS Safety Report 14169234 (Version 1)
Quarter: 2017Q4

REPORT INFORMATION
  Report Type: Spontaneous
  Country: US (occurrence: US)
  Receive Date: 20171108
  Receipt Date: 20171108
  Transmission Date: 20180321
  Serious: Yes (Hospitalization)
  Sender: FDA-Public Use
  Company Number: US-BEH-2017084861

PATIENT
  Sex: Female
  Weight: 93.88 kg

DRUGS (24)
  1. ARNICA                             /01006901/ [Concomitant]
  2. FISH OIL [Concomitant]
     Active Substance: FISH OIL
  3. CALCIUM+D3 [Concomitant]
  4. MULTIVITAMIN                       /00097801/ [Concomitant]
     Active Substance: VITAMINS
  5. VITAMIN D                          /00107901/ [Concomitant]
     Active Substance: ERGOCALCIFEROL
  6. FLUOXETINE [Concomitant]
     Active Substance: FLUOXETINE HYDROCHLORIDE
  7. DICLOFENAC [Concomitant]
     Active Substance: DICLOFENAC
  8. ALBUTEROL                          /00139501/ [Concomitant]
     Active Substance: ALBUTEROL
  9. CELEBREX [Concomitant]
     Active Substance: CELECOXIB
  10. METFORMIN [Concomitant]
     Active Substance: METFORMIN HYDROCHLORIDE
  11. FLOVENT [Concomitant]
     Active Substance: FLUTICASONE PROPIONATE
  12. IRON [Concomitant]
     Active Substance: IRON
  13. CLONAZEPAM. [Concomitant]
     Active Substance: CLONAZEPAM
  14. HIZENTRA [Suspect]
     Active Substance: HUMAN IMMUNOGLOBULIN G
     Dosage: UNK
     Route: 058
  15. VITAMIN B12 [Concomitant]
     Active Substance: CYANOCOBALAMIN
  16. AMITRIPTYLINE [Concomitant]
     Active Substance: AMITRIPTYLINE
  17. GLUCOSAMINE [Concomitant]
     Active Substance: GLUCOSAMINE
  18. ZOLPIDEM [Concomitant]
     Active Substance: ZOLPIDEM\ZOLPIDEM TARTRATE
  19. SUCRALFATE. [Concomitant]
     Active Substance: SUCRALFATE
  20. TINCTURE IODINE [Concomitant]
  21. TRAMADOL. [Concomitant]
     Active Substance: TRAMADOL
  22. HIZENTRA [Suspect]
     Active Substance: HUMAN IMMUNOGLOBULIN G
     Indication: IMMUNODEFICIENCY COMMON VARIABLE
     Dosage: 20 G, UNK
     Route: 058
     Dates: start: 20110713
  23. OMEPRAZOLE. [Concomitant]
     Active Substance: OMEPRAZOLE
  24. PRAVASTATIN. [Concomitant]
     Active Substance: PRAVASTATIN

REACTIONS (1)
  - Pericarditis [Unknown]
